FAERS Safety Report 7740735-6 (Version None)
Quarter: 2011Q3

REPORT INFORMATION
  Report Type: 
  Country: None (occurrence: None)
  Receive Date: 20110909
  Receipt Date: 20110907
  Transmission Date: 20111222
  Serious: Yes (Other)
  Sender: FDA-Public Use
  Company Number: JP-PFIZER INC-2011158795

PATIENT
  Age: 65 Year
  Sex: Male

DRUGS (2)
  1. LYRICA [Suspect]
     Dosage: 100 MG/DAY
     Dates: start: 20110712
  2. LYRICA [Suspect]
     Indication: NEURALGIA
     Dosage: 150 MG/DAY
     Dates: start: 20110101, end: 20110711

REACTIONS (2)
  - URINARY INCONTINENCE [None]
  - POLYARTHRITIS [None]
